FAERS Safety Report 9728775 (Version 1)
Quarter: 2013Q4

REPORT INFORMATION
  Report Type: Spontaneous
  Country: US (occurrence: US)
  Receive Date: 20131204
  Receipt Date: 20131204
  Transmission Date: 20140711
  Serious: No
  Sender: FDA-Public Use
  Company Number: US-BAYER-2013-147718

PATIENT
  Sex: 0

DRUGS (2)
  1. MIDOL EXTENDED RELIEF CAPLET [Suspect]
     Indication: MUSCLE SPASMS
  2. IBUPROFEN [Concomitant]

REACTIONS (1)
  - Drug ineffective [None]
